FAERS Safety Report 12012499 (Version 4)
Quarter: 2016Q1

REPORT INFORMATION
  Report Type: Report from Study
  Country: PT (occurrence: PT)
  Receive Date: 20160205
  Receipt Date: 20160311
  Transmission Date: 20160526
  Serious: Yes (Other)
  Sender: FDA-Public Use
  Company Number: PT-ABBVIE-16K-130-1550132-00

PATIENT
  Sex: Female

DRUGS (2)
  1. HUMIRA [Suspect]
     Active Substance: ADALIMUMAB
     Indication: PSORIATIC ARTHROPATHY
     Route: 058
     Dates: start: 20151218
  2. MINIGESTE [Concomitant]
     Active Substance: ETHINYL ESTRADIOL\GESTODENE
     Indication: CONTRACEPTION
     Route: 048

REACTIONS (15)
  - Bladder discomfort [Recovered/Resolved]
  - Malaise [Recovered/Resolved]
  - Vulvovaginal burning sensation [Not Recovered/Not Resolved]
  - Urinary tract infection [Recovered/Resolved]
  - Vaginal discharge [Not Recovered/Not Resolved]
  - Vulvovaginal pain [Recovering/Resolving]
  - Fatigue [Recovered/Resolved]
  - Vulvovaginal swelling [Not Recovered/Not Resolved]
  - Urine output increased [Recovered/Resolved]
  - Vulvovaginal burning sensation [Recovering/Resolving]
  - Red blood cell count increased [Unknown]
  - White blood cell count decreased [Unknown]
  - Skin irritation [Unknown]
  - Vaginal odour [Recovered/Resolved]
  - Urinary retention [Unknown]

NARRATIVE: CASE EVENT DATE: 201601
